FAERS Safety Report 9803783 (Version 1)
Quarter: 2014Q1

REPORT INFORMATION
  Report Type: Spontaneous
  Country: US (occurrence: US)
  Receive Date: 20140108
  Receipt Date: 20140108
  Transmission Date: 20141002
  Serious: No
  Sender: FDA-Public Use
  Company Number: US-GLAXOSMITHKLINE-A1037488A

PATIENT
  Age: 55 Year
  Sex: Female

DRUGS (2)
  1. LOVAZA [Suspect]
     Indication: BLOOD TRIGLYCERIDES INCREASED
     Dosage: 2G TWICE PER DAY
     Route: 048
     Dates: end: 20130731
  2. UNKNOWN [Concomitant]

REACTIONS (3)
  - Rash generalised [Unknown]
  - Urticaria [Unknown]
  - Food allergy [Unknown]
